FAERS Safety Report 19767484 (Version 1)
Quarter: 2021Q3

REPORT INFORMATION
  Report Type: Spontaneous
  Country: US (occurrence: US)
  Receive Date: 20210830
  Receipt Date: 20210830
  Transmission Date: 20211014
  Serious: Yes (Death)
  Sender: FDA-Public Use
  Company Number: None

PATIENT
  Sex: Female
  Weight: 74.25 kg

DRUGS (12)
  1. OMEPRAZOLE. [Concomitant]
     Active Substance: OMEPRAZOLE
  2. INTRON A [Suspect]
     Active Substance: INTERFERON ALFA-2B
     Indication: MYELOFIBROSIS
     Dosage: ?          OTHER FREQUENCY:3 TIMES A WEEK;?
     Route: 058
  3. LASIX [Concomitant]
     Active Substance: FUROSEMIDE
  4. JAKAFI [Concomitant]
     Active Substance: RUXOLITINIB
  5. METOPROLOL SUCCINATE ER [Concomitant]
     Active Substance: METOPROLOL SUCCINATE
  6. HYDROXYUREA. [Concomitant]
     Active Substance: HYDROXYUREA
  7. VITAMIN B?1 [Concomitant]
     Active Substance: THIAMINE HYDROCHLORIDE
  8. WARFARIN [Concomitant]
     Active Substance: WARFARIN
  9. SERTALINE [Concomitant]
     Active Substance: SERTRALINE HYDROCHLORIDE
  10. ALLOPURINOL. [Concomitant]
     Active Substance: ALLOPURINOL
  11. CLONAZEPAM. [Concomitant]
     Active Substance: CLONAZEPAM
  12. ALDACTONE [Concomitant]
     Active Substance: SPIRONOLACTONE

REACTIONS (1)
  - Death [None]
